FAERS Safety Report 6675250-4 (Version None)
Quarter: 2010Q2

REPORT INFORMATION
  Report Type: 
  Country: None (occurrence: None)
  Receive Date: 20100409
  Receipt Date: 20100209
  Transmission Date: 20101027
  Serious: No
  Sender: FDA-Public Use
  Company Number: A0815415A

PATIENT
  Age: 58 Year
  Sex: Female

DRUGS (2)
  1. TYKERB [Suspect]
     Indication: DRUG USE FOR UNKNOWN INDICATION
     Dosage: 4TAB PER DAY
     Dates: start: 20091024
  2. HERCEPTIN [Concomitant]
     Route: 042

REACTIONS (6)
  - DERMATITIS ACNEIFORM [None]
  - DYSGEUSIA [None]
  - FLATULENCE [None]
  - GASTROINTESTINAL DISORDER [None]
  - NAUSEA [None]
  - STOMATITIS [None]
